FAERS Safety Report 26063894 (Version 1)
Quarter: 2025Q4

REPORT INFORMATION
  Report Type: Spontaneous
  Country: CN (occurrence: CN)
  Receive Date: 20251119
  Receipt Date: 20251119
  Transmission Date: 20260118
  Serious: Yes (Other)
  Sender: ORGANON
  Company Number: CN-ORGANON-O2511CHN001213

PATIENT
  Age: 67 Year
  Sex: Female
  Weight: 50 kg

DRUGS (3)
  1. DIPROSPAN [Suspect]
     Active Substance: BETAMETHASONE DIPROPIONATE\BETAMETHASONE SODIUM PHOSPHATE
     Indication: Drug eruption
     Dosage: 5MG, QD, LOCAL INJECTION
     Dates: start: 20251102, end: 20251102
  2. HYALURONATE SODIUM [Suspect]
     Active Substance: HYALURONATE SODIUM
     Indication: Drug eruption
     Dosage: 25MG, QD, LOCAL INJECTION
     Dates: start: 20251102, end: 20251102
  3. LIDOCAINE HYDROCHLORIDE [Suspect]
     Active Substance: LIDOCAINE HYDROCHLORIDE
     Indication: Drug eruption
     Dosage: 0.1G, QD, LOCAL INJECTION
     Dates: start: 20251102, end: 20251102

REACTIONS (1)
  - Drug eruption [Recovering/Resolving]

NARRATIVE: CASE EVENT DATE: 20251102
